FAERS Safety Report 22230589 (Version 2)
Quarter: 2023Q2

REPORT INFORMATION
  Report Type: Spontaneous
  Country: JP (occurrence: JP)
  Receive Date: 20230420
  Receipt Date: 20230505
  Transmission Date: 20230721
  Serious: Yes (Death, Other)
  Sender: FDA-Public Use
  Company Number: JP-CHUGAI-2023013656

PATIENT
  Age: 61 Year
  Sex: Male
  Weight: 84 kg

DRUGS (14)
  1. TECENTRIQ [Suspect]
     Active Substance: ATEZOLIZUMAB
     Indication: Hepatocellular carcinoma
     Dosage: 1200 MILLIGRAM, SINGLE
     Route: 041
     Dates: start: 20230323, end: 20230323
  2. AVASTIN [Suspect]
     Active Substance: BEVACIZUMAB
     Indication: Hepatocellular carcinoma
     Route: 041
     Dates: start: 20230323, end: 20230323
  3. ESOMEPRAZOLE MAGNESIUM [Concomitant]
     Active Substance: ESOMEPRAZOLE MAGNESIUM
     Dosage: 20 MILLIGRAM, QD
     Route: 048
     Dates: end: 20230405
  4. FEBUXOSTAT [Concomitant]
     Active Substance: FEBUXOSTAT
     Dosage: 20 MILLIGRAM, QD
     Route: 048
     Dates: end: 20230405
  5. AMLODIPINE BESYLATE [Concomitant]
     Active Substance: AMLODIPINE BESYLATE
     Dosage: 15 MILLIGRAM, QD
     Route: 048
     Dates: end: 20230405
  6. SOLIFENACIN SUCCINATE [Concomitant]
     Active Substance: SOLIFENACIN SUCCINATE
     Dosage: 10 MILLIGRAM, QD
     Route: 048
     Dates: end: 20230405
  7. URSODIOL [Concomitant]
     Active Substance: URSODIOL
     Dosage: 100 MILLIGRAM, TID
     Route: 048
     Dates: end: 20230405
  8. AMMONIUM GLYCYRRHIZATE\GLYCINE\RACEMETHIONINE [Concomitant]
     Active Substance: AMMONIUM GLYCYRRHIZATE\GLYCINE\RACEMETHIONINE
     Dosage: 3T/3
     Route: 048
     Dates: end: 20230405
  9. CARBOCYSTEINE [Concomitant]
     Active Substance: CARBOCYSTEINE
     Dosage: 50 MILLIGRAM, BID
     Route: 048
     Dates: end: 20230405
  10. BEPOTASTINE BESYLATE [Concomitant]
     Active Substance: BEPOTASTINE BESYLATE
     Dosage: 10 MILLIGRAM, BID
     Route: 048
     Dates: end: 20230405
  11. DEXTROMETHORPHAN HYDROBROMIDE [Concomitant]
     Active Substance: DEXTROMETHORPHAN HYDROBROMIDE
     Dosage: 15 MILLIGRAM, TID
     Route: 048
     Dates: end: 20230405
  12. LEVOFLOXACIN HEMIHYDRATE [Concomitant]
     Active Substance: LEVOFLOXACIN
     Dosage: 500 MILLIGRAM, QD
     Route: 048
     Dates: start: 20230327, end: 20230405
  13. MIYA-BM [Concomitant]
     Active Substance: CLOSTRIDIUM BUTYRICUM SPORES STRAIN M-55
     Dosage: 3T/1
     Route: 048
     Dates: start: 20230327, end: 20230405
  14. BEZAFIBRATE [Concomitant]
     Active Substance: BEZAFIBRATE

REACTIONS (6)
  - Encephalitis [Fatal]
  - Depressed level of consciousness [Fatal]
  - Thrombophlebitis migrans [Fatal]
  - Erythema multiforme [Not Recovered/Not Resolved]
  - Pyrexia [Unknown]
  - Cough [Unknown]

NARRATIVE: CASE EVENT DATE: 20230326
